FAERS Safety Report 25115824 (Version 1)
Quarter: 2025Q1

REPORT INFORMATION
  Report Type: Spontaneous
  Country: US (occurrence: US)
  Receive Date: 20250325
  Receipt Date: 20250325
  Transmission Date: 20250409
  Serious: Yes (Other)
  Sender: AMGEN
  Company Number: US-AMGEN-USASP2025055407

PATIENT
  Sex: Female

DRUGS (2)
  1. TAVNEOS [Suspect]
     Active Substance: AVACOPAN
     Indication: Anti-neutrophil cytoplasmic antibody positive vasculitis
     Dosage: 30 MILLIGRAM, BID
     Route: 065
     Dates: start: 202409, end: 202411
  2. ISONIAZID [Suspect]
     Active Substance: ISONIAZID
     Indication: Product used for unknown indication
     Route: 065

REACTIONS (1)
  - Aplastic anaemia [Unknown]

NARRATIVE: CASE EVENT DATE: 20250201
